FAERS Safety Report 8915290 (Version 1)
Quarter: 2012Q4

REPORT INFORMATION
  Report Type: 
  Country: JP (occurrence: JP)
  Receive Date: 20121119
  Receipt Date: 20121119
  Transmission Date: 20130627
  Serious: Yes (Hospitalization)
  Sender: FDA-Public Use
  Company Number: JP-BAYER-2012-112134

PATIENT
  Age: 82 Year
  Sex: Male
  Weight: 62 kg

DRUGS (5)
  1. NEXAVAR [Suspect]
     Indication: CARCINOMA HEPATOCELLULAR
     Dosage: 400 mg, BID
     Route: 048
     Dates: start: 20120914, end: 20121019
  2. URSO [Concomitant]
     Indication: HEPATIC CIRRHOSIS
     Dosage: Daily dose 300 mg
     Route: 048
     Dates: start: 2008
  3. LIVACT [Concomitant]
     Indication: HEPATIC CIRRHOSIS
     Dosage: Daily dose 12.45 g
     Route: 048
     Dates: start: 2009
  4. NORVASC [Concomitant]
     Indication: HYPERTENSION
     Dosage: Daily dose 5 mg
     Route: 048
     Dates: start: 201002
  5. GOODMIN [Concomitant]
     Indication: INSOMNIA
     Dosage: Daily dose .25 mg
     Route: 048
     Dates: start: 2008

REACTIONS (2)
  - Liver disorder [Recovered/Resolved]
  - Hepatic enzyme increased [Recovered/Resolved]
